FAERS Safety Report 20999778 (Version 2)
Quarter: 2022Q3

REPORT INFORMATION
  Report Type: Spontaneous
  Country: US (occurrence: US)
  Receive Date: 20220623
  Receipt Date: 20220720
  Transmission Date: 20221026
  Serious: No
  Sender: FDA-Public Use
  Company Number: US-PFIZER INC-PV202200008137

PATIENT
  Age: 25 Year
  Sex: Female

DRUGS (1)
  1. IBRANCE [Suspect]
     Active Substance: PALBOCICLIB
     Indication: Renal cancer
     Dosage: 125 MG

REACTIONS (2)
  - Neoplasm progression [Unknown]
  - Off label use [Unknown]
